FAERS Safety Report 4992749-7 (Version None)
Quarter: 2006Q1

REPORT INFORMATION
  Report Type: 
  Country: None (occurrence: None)
  Receive Date: 20060313
  Receipt Date: 20051104
  Transmission Date: 20060701
  Serious: No
  Sender: FDA-Public Use
  Company Number: 2005-BP-00126BP

PATIENT
  Age: 78 Year
  Sex: Female
  Weight: 40 kg

DRUGS (7)
  1. SPIRIVA [Suspect]
     Indication: CHRONIC OBSTRUCTIVE PULMONARY DISEASE
     Dosage: 18 MCG(18 MCG),IH
     Dates: start: 20040723
  2. SINGULAIR [Suspect]
     Dosage: 5 MG (5MG QHS) ; 10 MG (10 MG QHS)
     Dates: start: 20040101, end: 20040101
  3. SINGULAIR [Suspect]
     Dosage: 5 MG (5MG QHS) ; 10 MG (10 MG QHS)
     Dates: start: 20041001
  4. FLONASE [Concomitant]
  5. ALBUTEROL [Concomitant]
  6. ADVAIR (SERETIDE) [Concomitant]
  7. ALLERGY IMMUNE THERAPY [Concomitant]

REACTIONS (2)
  - ARTHRALGIA [None]
  - ASTHENIA [None]
